FAERS Safety Report 6115075-1 (Version None)
Quarter: 2009Q1

REPORT INFORMATION
  Report Type: 
  Country: None (occurrence: None)
  Receive Date: 20090313
  Receipt Date: 20090304
  Transmission Date: 20090719
  Serious: Yes (Death)
  Sender: FDA-Public Use
  Company Number: B0563158A

PATIENT
  Age: 83 Year
  Sex: Male

DRUGS (9)
  1. ARIXTRA [Suspect]
     Indication: PULMONARY EMBOLISM
     Dosage: 7.5MG PER DAY
     Route: 058
     Dates: start: 20081231, end: 20090115
  2. PLAVIX [Suspect]
     Dosage: 75MG PER DAY
     Route: 048
  3. DEROXAT [Concomitant]
     Route: 065
     Dates: end: 20081229
  4. SINEMET [Concomitant]
     Indication: PARKINSON'S DISEASE
     Dosage: 200MG PER DAY
     Route: 048
  5. MODOPAR [Concomitant]
     Indication: PARKINSON'S DISEASE
     Dosage: 125MG PER DAY
     Route: 048
  6. MOTILIUM [Concomitant]
     Route: 065
     Dates: end: 20081229
  7. VASTEN [Concomitant]
     Route: 065
     Dates: end: 20081229
  8. GUTRON [Concomitant]
     Route: 065
     Dates: end: 20081229
  9. FORLAX [Concomitant]
     Route: 065
     Dates: end: 20081229

REACTIONS (5)
  - ANAEMIA [None]
  - DRUG INTERACTION [None]
  - HAEMATOMA [None]
  - MUSCLE HAEMORRHAGE [None]
  - RETROPERITONEAL HAEMATOMA [None]
